FAERS Safety Report 5442369-5 (Version None)
Quarter: 2007Q3

REPORT INFORMATION
  Report Type: 
  Country: None (occurrence: None)
  Receive Date: 20070904
  Receipt Date: 20070809
  Transmission Date: 20080115
  Serious: No
  Sender: FDA-Public Use
  Company Number: FR-PFIZER INC-2007059518

PATIENT
  Sex: Male

DRUGS (7)
  1. ATARAX [Suspect]
     Indication: POSTOPERATIVE CARE
     Dosage: DAILY DOSE:50MG-FREQ:ONCE
     Route: 060
  2. PERINDOPRIL ERBUMINE [Concomitant]
  3. INDAPAMIDE [Concomitant]
  4. NOVOMIX [Concomitant]
  5. DUROGESIC [Concomitant]
  6. MEPROBAMATE [Concomitant]
  7. NAFTIDROFURYL [Concomitant]

REACTIONS (2)
  - INCORRECT ROUTE OF DRUG ADMINISTRATION [None]
  - MOUTH ULCERATION [None]
